FAERS Safety Report 6109269-9 (Version None)
Quarter: 2009Q1

REPORT INFORMATION
  Report Type: 
  Country: None (occurrence: None)
  Receive Date: 20090306
  Receipt Date: 20090306
  Transmission Date: 20090719
  Serious: No
  Sender: FDA-Public Use
  Company Number: None

PATIENT
  Sex: Female
  Weight: 80 kg

DRUGS (6)
  1. PEG-L-ASPARAGINASE (PEGASPARGASE, ONCOSPAR) [Suspect]
     Dosage: 4750 IU
     Dates: end: 20090202
  2. CYTARABINE [Suspect]
     Dosage: 70 MG
     Dates: end: 20090130
  3. DAUNORUBICIN HCL [Suspect]
     Dosage: 150.5 MG
     Dates: end: 20090220
  4. METHOTREXATE [Suspect]
     Dosage: 30 MG
     Dates: end: 20090227
  5. PREDNISONE [Suspect]
     Dosage: 3360 MG
  6. VINCRISTINE SULFATE [Suspect]
     Dosage: 7.9 MG
     Dates: end: 20090220

REACTIONS (2)
  - HYPERCHOLESTEROLAEMIA [None]
  - HYPERTRIGLYCERIDAEMIA [None]
